FAERS Safety Report 25235962 (Version 1)
Quarter: 2025Q2

REPORT INFORMATION
  Report Type: Spontaneous
  Country: FR (occurrence: FR)
  Receive Date: 20250424
  Receipt Date: 20250424
  Transmission Date: 20250717
  Serious: Yes (Other)
  Sender: MYLAN
  Company Number: None

PATIENT
  Age: 67 Year
  Sex: Female

DRUGS (20)
  1. ATORVASTATIN [Suspect]
     Active Substance: ATORVASTATIN
     Indication: Product used for unknown indication
     Dosage: 20 MILLIGRAM, QD
  2. ATORVASTATIN [Suspect]
     Active Substance: ATORVASTATIN
     Dosage: 20 MILLIGRAM, QD
     Route: 048
  3. ATORVASTATIN [Suspect]
     Active Substance: ATORVASTATIN
     Dosage: 20 MILLIGRAM, QD
     Route: 048
  4. ATORVASTATIN [Suspect]
     Active Substance: ATORVASTATIN
     Dosage: 20 MILLIGRAM, QD
  5. COMIRNATY (TOZINAMERAN) [Suspect]
     Active Substance: TOZINAMERAN
     Indication: COVID-19 immunisation
     Dates: start: 202103, end: 202103
  6. COMIRNATY (TOZINAMERAN) [Suspect]
     Active Substance: TOZINAMERAN
     Dates: start: 202103, end: 202103
  7. COMIRNATY (TOZINAMERAN) [Suspect]
     Active Substance: TOZINAMERAN
     Route: 030
     Dates: start: 202103, end: 202103
  8. COMIRNATY (TOZINAMERAN) [Suspect]
     Active Substance: TOZINAMERAN
     Route: 030
     Dates: start: 202103, end: 202103
  9. COMIRNATY (TOZINAMERAN) [Suspect]
     Active Substance: TOZINAMERAN
     Dates: start: 20210621, end: 20210621
  10. COMIRNATY (TOZINAMERAN) [Suspect]
     Active Substance: TOZINAMERAN
     Dates: start: 20210621, end: 20210621
  11. COMIRNATY (TOZINAMERAN) [Suspect]
     Active Substance: TOZINAMERAN
     Route: 030
     Dates: start: 20210621, end: 20210621
  12. COMIRNATY (TOZINAMERAN) [Suspect]
     Active Substance: TOZINAMERAN
     Route: 030
     Dates: start: 20210621, end: 20210621
  13. METFORMIN PAMOATE [Suspect]
     Active Substance: METFORMIN PAMOATE
     Indication: Diabetes mellitus
     Dosage: QD
  14. METFORMIN PAMOATE [Suspect]
     Active Substance: METFORMIN PAMOATE
     Dosage: QD
     Route: 048
  15. METFORMIN PAMOATE [Suspect]
     Active Substance: METFORMIN PAMOATE
     Dosage: QD
     Route: 048
  16. METFORMIN PAMOATE [Suspect]
     Active Substance: METFORMIN PAMOATE
     Dosage: QD
  17. INSULIN NOS [Suspect]
     Active Substance: INSULIN NOS
     Indication: Diabetes mellitus
  18. INSULIN NOS [Suspect]
     Active Substance: INSULIN NOS
     Route: 058
  19. INSULIN NOS [Suspect]
     Active Substance: INSULIN NOS
     Route: 058
  20. INSULIN NOS [Suspect]
     Active Substance: INSULIN NOS

REACTIONS (3)
  - Hypertension [Not Recovered/Not Resolved]
  - Retinal oedema [Not Recovered/Not Resolved]
  - Tendon disorder [Not Recovered/Not Resolved]

NARRATIVE: CASE EVENT DATE: 20220830
